FAERS Safety Report 8049657-7 (Version None)
Quarter: 2012Q1

REPORT INFORMATION
  Report Type: 
  Country: None (occurrence: None)
  Receive Date: 20120111
  Receipt Date: 20110202
  Transmission Date: 20120608
  Serious: Yes (Other)
  Sender: FDA-Public Use
  Company Number: 2011-00485

PATIENT
  Age: 39 Year
  Sex: Female

DRUGS (6)
  1. METFORMIN HCL [Concomitant]
  2. LISINOPRIL AND HYDROCHLOROTHIAZIDE [Concomitant]
  3. TUBERSOL [Suspect]
     Indication: TUBERCULIN TEST
     Dosage: I.D.
     Dates: start: 20110131, end: 20110131
  4. PRAVASTATIN [Concomitant]
  5. ^OMEPRIZOLE^ [Concomitant]
  6. GLIPIZIDE [Concomitant]

REACTIONS (4)
  - INJECTION SITE PAIN [None]
  - INJECTION SITE PRURITUS [None]
  - INJECTION SITE ERYTHEMA [None]
  - CELLULITIS [None]
